FAERS Safety Report 17803951 (Version 1)
Quarter: 2020Q2

REPORT INFORMATION
  Report Type: Spontaneous
  Country: US (occurrence: US)
  Receive Date: 20200519
  Receipt Date: 20200519
  Transmission Date: 20200714
  Serious: No
  Sender: FDA-Public Use
  Company Number: US-FRESENIUS MEDICAL CARE RENAL THERAPIES GROUP-FMC-2005-000536

PATIENT
  Age: 81 Year
  Sex: Female
  Weight: 76.4 kg

DRUGS (15)
  1. DELFLEX WITH DEXTROSE 2.5% LOW MAGNESIUM LOW CALCIUM [Suspect]
     Active Substance: CALCIUM CHLORIDE\DEXTROSE\MAGNESIUM CHLORIDE\SODIUM CHLORIDE\SODIUM LACTATE
     Indication: END STAGE RENAL DISEASE
     Dosage: FILLS = 5, FILL VOLUME = 1800 ML, NO LAST FILL, TOTAL VOLUME = 9000 ML, TOTAL SLEEP TIME = 8.0 HOURS
     Route: 033
     Dates: start: 20190611
  2. RENAPLEX [Concomitant]
  3. LEVEMIR [Concomitant]
     Active Substance: INSULIN DETEMIR
  4. COLACE [Concomitant]
     Active Substance: DOCUSATE SODIUM
  5. ARANESP [Concomitant]
     Active Substance: DARBEPOETIN ALFA
  6. HYDRALAZINE [Concomitant]
     Active Substance: HYDRALAZINE HYDROCHLORIDE
  7. ASPIRIN. [Concomitant]
     Active Substance: ASPIRIN
  8. GENTAMYCIN [Concomitant]
     Active Substance: GENTAMICIN
  9. AMLODIPINE [Concomitant]
     Active Substance: AMLODIPINE BESYLATE
  10. LIPITOR [Concomitant]
     Active Substance: ATORVASTATIN CALCIUM
  11. ALLOPURINOL. [Concomitant]
     Active Substance: ALLOPURINOL
  12. AURYXIA [Concomitant]
     Active Substance: TETRAFERRIC TRICITRATE DECAHYDRATE
  13. TORSEMIDE. [Concomitant]
     Active Substance: TORSEMIDE
  14. VENOFER [Concomitant]
     Active Substance: IRON SUCROSE
  15. SYNTHROID [Concomitant]
     Active Substance: LEVOTHYROXINE SODIUM

REACTIONS (1)
  - Umbilical hernia [Unknown]
